FAERS Safety Report 17245631 (Version 1)
Quarter: 2020Q1

REPORT INFORMATION
  Report Type: Other
  Country: US (occurrence: US)
  Receive Date: 20200108
  Receipt Date: 20200108
  Transmission Date: 20200409
  Serious: Yes (Hospitalization, Other)
  Sender: FDA-Public Use
  Company Number: US-SUNRISE PHARMACEUTICAL, INC.-2078645

PATIENT
  Age: 41 Year
  Sex: Female

DRUGS (3)
  1. BENZODIAZEPINES [Suspect]
     Active Substance: BENZODIAZEPINE
     Route: 065
  2. AMPHETAMINES [Suspect]
     Active Substance: AMPHETAMINE
     Route: 065
  3. OXYCODONE HYDROCHLORIDE. [Suspect]
     Active Substance: OXYCODONE HYDROCHLORIDE
     Indication: PRODUCT USED FOR UNKNOWN INDICATION
     Route: 065

REACTIONS (3)
  - Acute respiratory distress syndrome [Unknown]
  - Substance abuse [Unknown]
  - Diastolic dysfunction [Unknown]
